FAERS Safety Report 7405775-5 (Version None)
Quarter: 2011Q2

REPORT INFORMATION
  Report Type: 
  Country: None (occurrence: None)
  Receive Date: 20110411
  Receipt Date: 20110405
  Transmission Date: 20111010
  Serious: Yes (Other)
  Sender: FDA-Public Use
  Company Number: JP-PFIZER INC-2011075513

PATIENT
  Sex: Female

DRUGS (2)
  1. RENIVACE [Concomitant]
     Indication: HYPERTENSION
  2. DOXAZOSIN MESYLATE [Suspect]
     Indication: HYPERTENSION
     Dosage: 2 MG, ONCE DAILY AFTER BREAKFAST
     Route: 048
     Dates: start: 20010101

REACTIONS (5)
  - TACHYCARDIA [None]
  - HYPOTENSION [None]
  - EYELID PTOSIS [None]
  - EYELID OEDEMA [None]
  - LIP SWELLING [None]
